FAERS Safety Report 5117772-3 (Version None)
Quarter: 2006Q3

REPORT INFORMATION
  Report Type: 
  Country: None (occurrence: None)
  Receive Date: 20060929
  Receipt Date: 20060912
  Transmission Date: 20061208
  Serious: Yes (Death)
  Sender: FDA-Public Use
  Company Number: GB-GLAXOSMITHKLINE-B0440146A

PATIENT
  Sex: Male

DRUGS (1)
  1. KIVEXA [Suspect]
     Indication: HIV INFECTION

REACTIONS (4)
  - CARDIAC DISORDER [None]
  - CARDIAC TAMPONADE [None]
  - HYPERSENSITIVITY [None]
  - SWELLING FACE [None]
